FAERS Safety Report 8492980-2 (Version None)
Quarter: 2012Q3

REPORT INFORMATION
  Report Type: 
  Country: None (occurrence: None)
  Receive Date: 20120706
  Receipt Date: 20120627
  Transmission Date: 20120928
  Serious: Yes (Hospitalization, Disabling)
  Sender: FDA-Public Use
  Company Number: US-JNJFOC-20120412543

PATIENT
  Sex: Male
  Weight: 75.75 kg

DRUGS (13)
  1. XARELTO [Suspect]
     Indication: ATRIAL FIBRILLATION
     Route: 048
     Dates: start: 20120410, end: 20120419
  2. ASCORBIC ACID [Concomitant]
  3. SIMVASTATIN [Concomitant]
     Indication: BLOOD CHOLESTEROL
  4. VITAMIN A [Concomitant]
  5. ASPIRIN [Suspect]
     Indication: ILL-DEFINED DISORDER
     Route: 048
  6. ASPIRIN [Suspect]
     Route: 048
     Dates: start: 20120501
  7. OMEPRAZOLE [Concomitant]
  8. METOPROLOL [Concomitant]
     Indication: CARDIAC DISORDER
     Route: 048
  9. FISH OIL [Concomitant]
  10. VITAMIN D [Concomitant]
  11. MULTIVITAMINS WITH IRON [Concomitant]
  12. XARELTO [Suspect]
     Indication: CEREBROVASCULAR ACCIDENT PROPHYLAXIS
     Route: 048
     Dates: start: 20120410, end: 20120419
  13. OMEGA 3 FATTY ACID [Concomitant]

REACTIONS (3)
  - ATRIAL FIBRILLATION [None]
  - SPLENIC RUPTURE [None]
  - CATARACT OPERATION [None]
